FAERS Safety Report 6673304-X (Version None)
Quarter: 2010Q2

REPORT INFORMATION
  Report Type: 
  Country: None (occurrence: None)
  Receive Date: 20100408
  Receipt Date: 20100330
  Transmission Date: 20101027
  Serious: Yes (Death, Hospitalization)
  Sender: FDA-Public Use
  Company Number: JP-BAXTER-2010BH008509

PATIENT
  Age: 69 Year
  Sex: Female

DRUGS (2)
  1. EXTRANEAL [Suspect]
     Indication: RENAL FAILURE
     Route: 033
     Dates: start: 20090701, end: 20100330
  2. EXTRANEAL [Suspect]
     Indication: CARDIAC HYPERTROPHY
     Route: 033
     Dates: start: 20090701, end: 20100330

REACTIONS (3)
  - CARDIAC ARREST [None]
  - MULTI-ORGAN FAILURE [None]
  - NUTRITIONAL CONDITION ABNORMAL [None]
